FAERS Safety Report 6683823-8 (Version None)
Quarter: 2010Q2

REPORT INFORMATION
  Report Type: 
  Country: None (occurrence: None)
  Receive Date: 20100416
  Receipt Date: 20090217
  Transmission Date: 20101027
  Serious: No
  Sender: FDA-Public Use
  Company Number: A0826751A

PATIENT
  Age: 4 Month

DRUGS (1)
  1. VUSION [Suspect]
     Indication: DERMATITIS DIAPER
     Route: 065
     Dates: start: 20090129, end: 20090203

REACTIONS (2)
  - DRUG INEFFECTIVE [None]
  - SKIN BURNING SENSATION [None]
